FAERS Safety Report 13459190 (Version 2)
Quarter: 2017Q4

REPORT INFORMATION
  Report Type: Report from Study
  Country: GB (occurrence: GB)
  Receive Date: 20170419
  Receipt Date: 20171208
  Transmission Date: 20180320
  Serious: Yes (Other)
  Sender: FDA-Public Use
  Company Number: GB-CIPLA LTD.-2017GB06591

PATIENT

DRUGS (3)
  1. CARBAMAZEPINE. [Suspect]
     Active Substance: CARBAMAZEPINE
     Indication: TEMPORAL LOBE EPILEPSY
     Dosage: UNK
     Route: 065
  2. CARBAMAZEPINE. [Suspect]
     Active Substance: CARBAMAZEPINE
     Indication: AMNESIA
  3. LEVETIRACETAM. [Suspect]
     Active Substance: LEVETIRACETAM
     Indication: SEIZURE
     Dosage: UNK
     Route: 065
     Dates: start: 201412

REACTIONS (9)
  - Seizure [Unknown]
  - Seizure [Unknown]
  - Disturbance in attention [Not Recovered/Not Resolved]
  - Hyponatraemia [Recovered/Resolved with Sequelae]
  - Delirium [Unknown]
  - Cerebral atrophy [Unknown]
  - Encephalopathy [Recovered/Resolved with Sequelae]
  - Fatigue [Not Recovered/Not Resolved]
  - Affect lability [Unknown]

NARRATIVE: CASE EVENT DATE: 2008
